FAERS Safety Report 7578319-5 (Version None)
Quarter: 2011Q2

REPORT INFORMATION
  Report Type: 
  Country: None (occurrence: None)
  Receive Date: 20110628
  Receipt Date: 20110615
  Transmission Date: 20111010
  Serious: Yes (Disabling)
  Sender: FDA-Public Use
  Company Number: FR-BAYER-2011-046257

PATIENT
  Age: 33 Year
  Sex: Female
  Weight: 73.016 kg

DRUGS (1)
  1. MIRENA [Suspect]
     Indication: CONTRACEPTION
     Dosage: 20 ?G, CONT
     Route: 015
     Dates: start: 20091113, end: 20110207

REACTIONS (6)
  - PARAESTHESIA [None]
  - PREMATURE MENOPAUSE [None]
  - HOT FLUSH [None]
  - OLIGOMENORRHOEA [None]
  - FEELING HOT [None]
  - NIGHT SWEATS [None]
